FAERS Safety Report 10875024 (Version 3)
Quarter: 2015Q2

REPORT INFORMATION
  Report Type: Other
  Country: IT (occurrence: IT)
  Receive Date: 20150227
  Receipt Date: 20150626
  Transmission Date: 20150821
  Serious: Yes (Hospitalization)
  Sender: FDA-Public Use
  Company Number: IT-APOTEX-2015AP006859

PATIENT
  Age: 2 Year
  Sex: Male

DRUGS (1)
  1. PAROXETINE [Suspect]
     Active Substance: PAROXETINE\PAROXETINE HYDROCHLORIDE
     Indication: PRODUCT USED FOR UNKNOWN INDICATION
     Dosage: 20 MG, SINGLE
     Route: 048
     Dates: start: 20150212, end: 20150212

REACTIONS (3)
  - Tachycardia [Recovered/Resolved]
  - Erythema [Recovered/Resolved]
  - Accidental exposure to product [Recovered/Resolved]

NARRATIVE: CASE EVENT DATE: 20150212
